FAERS Safety Report 17290186 (Version 1)
Quarter: 2020Q1

REPORT INFORMATION
  Report Type: Report from Study
  Country: None (occurrence: US)
  Receive Date: 20200120
  Receipt Date: 20200120
  Transmission Date: 20200409
  Serious: Yes (Other)
  Sender: FDA-Public Use
  Company Number: US-ABBVIE-20K-163-3238959-00

PATIENT
  Age: 69 Year
  Sex: Female

DRUGS (4)
  1. HUMIRA [Suspect]
     Active Substance: ADALIMUMAB
     Indication: UVEITIS
     Route: 058
     Dates: end: 201802
  2. HUMIRA [Suspect]
     Active Substance: ADALIMUMAB
     Route: 058
     Dates: start: 201802
  3. FOLIC ACID. [Concomitant]
     Active Substance: FOLIC ACID
     Indication: PRODUCT USED FOR UNKNOWN INDICATION
  4. METHOTREXATE. [Suspect]
     Active Substance: METHOTREXATE
     Indication: UVEITIS
     Route: 065

REACTIONS (8)
  - Colour blindness [Unknown]
  - Uveitis [Not Recovered/Not Resolved]
  - Malaise [Unknown]
  - Sciatica [Unknown]
  - Trigger finger [Recovered/Resolved]
  - Drug ineffective [Unknown]
  - Joint range of motion decreased [Recovered/Resolved]
  - Eye inflammation [Recovering/Resolving]

NARRATIVE: CASE EVENT DATE: 201902
